FAERS Safety Report 20466733 (Version 1)
Quarter: 2022Q1

REPORT INFORMATION
  Report Type: Spontaneous
  Country: DE (occurrence: DE)
  Receive Date: 20220213
  Receipt Date: 20220213
  Transmission Date: 20220424
  Serious: Yes (Other)
  Sender: FDA-Public Use
  Company Number: DE-EMBRYOTOX-202005515

PATIENT
  Sex: Male
  Weight: 3.06 kg

DRUGS (3)
  1. MIRTAZAPINE [Suspect]
     Active Substance: MIRTAZAPINE
     Indication: Depression
     Dosage: UNK (30 [MG/D ]/ INITIAL 7.5MG DAILY, DOSAGE INCREASED TO 30MG DAILY)
     Route: 064
     Dates: start: 20200515, end: 20200729
  2. FOLIC ACID [Concomitant]
     Active Substance: FOLIC ACID
     Indication: Prophylaxis of neural tube defect
     Dosage: UNK
     Route: 064
     Dates: start: 20191018, end: 20200729
  3. INSULIN NOS [Concomitant]
     Active Substance: INSULIN NOS
     Indication: Gestational diabetes
     Dosage: UNK
     Route: 064

REACTIONS (4)
  - Hyperbilirubinaemia neonatal [Recovered/Resolved]
  - Oxygen saturation decreased [Recovering/Resolving]
  - Sleep apnoea syndrome [Unknown]
  - Foetal exposure during pregnancy [Unknown]
